APPROVED DRUG PRODUCT: FLUOCINOLONE ACETONIDE
Active Ingredient: FLUOCINOLONE ACETONIDE
Strength: 0.025%
Dosage Form/Route: OINTMENT;TOPICAL
Application: A088507 | Product #001
Applicant: PHARMAFAIR INC
Approved: Feb 27, 1984 | RLD: No | RS: No | Type: DISCN